FAERS Safety Report 11882092 (Version 2)
Quarter: 2016Q1

REPORT INFORMATION
  Report Type: Spontaneous
  Country: FR (occurrence: FR)
  Receive Date: 20151231
  Receipt Date: 20160303
  Transmission Date: 20160526
  Serious: Yes (Other)
  Sender: FDA-Public Use
  Company Number: FR-PFIZER INC-2015475176

PATIENT
  Age: 81 Year
  Sex: Female

DRUGS (12)
  1. XANAX [Suspect]
     Active Substance: ALPRAZOLAM
     Dosage: 0.25 MG, 1 HOUR BEFORE THE INJECTION OF KETAMINE
     Route: 048
     Dates: start: 20151130
  2. SIMVASTATIN ACCORD HEALTHCARE [Concomitant]
     Dosage: 20 MG, 1X/DAY IN THE EVENING
  3. CONTRAMAL [Concomitant]
     Active Substance: TRAMADOL HYDROCHLORIDE
     Indication: PAIN
     Dosage: 50 MG, 1 DF AS NEEDED, MAXIMUM 2 DF PER DAY
  4. LEVOTHYROX [Concomitant]
     Active Substance: LEVOTHYROXINE
     Dosage: 50 UG, 1X/DAY IN THE MORNING
  5. KETAMINE PANPHARMA [Suspect]
     Active Substance: KETAMINE
     Indication: PAIN
     Dosage: 0.25 MG/KG, I.E. 17 MG OVER 4 HOURS
     Route: 041
     Dates: start: 20151130, end: 20151201
  6. DOLIPRANE [Concomitant]
     Active Substance: ACETAMINOPHEN
     Dosage: 1 G, 3X/DAY
  7. MICARDIS PLUS [Concomitant]
     Active Substance: HYDROCHLOROTHIAZIDE\TELMISARTAN
     Dosage: [HYDROCHLOROTHIAZIDE 80 MG]/[TELMISARTAN 12.5 MG], 1 DF, 1X/DAY
  8. LYRICA [Concomitant]
     Active Substance: PREGABALIN
     Dosage: 50 MG IN THE MORNING AND 100 MG IN THE EVENING
  9. CONTRAMAL LP [Concomitant]
     Active Substance: TRAMADOL HYDROCHLORIDE
     Dosage: 150 MG, 2X/DAY IN THE MORNING AND IN THE EVENING
  10. TANGANIL [Concomitant]
     Active Substance: ACETYLLEUCINE
     Dosage: 500 MG, 2X/DAY MORNING AND EVENING
  11. KARDEGIC [Concomitant]
     Active Substance: ASPIRIN LYSINE
     Dosage: 75 MG, 1X/DAY AT MIDDAY
  12. VERSATIS [Concomitant]
     Active Substance: LIDOCAINE
     Dosage: 3 PATCHS, IN THE MORNING FOR 12 HOURS

REACTIONS (6)
  - Syncope [Unknown]
  - Hypertension [Unknown]
  - Loss of consciousness [Recovered/Resolved]
  - Dizziness [Unknown]
  - Hypotension [Recovered/Resolved]
  - Oxygen saturation decreased [Recovered/Resolved]

NARRATIVE: CASE EVENT DATE: 20151130
